FAERS Safety Report 14077530 (Version 1)
Quarter: 2017Q4

REPORT INFORMATION
  Report Type: Spontaneous
  Country: BE (occurrence: BE)
  Receive Date: 20171012
  Receipt Date: 20171012
  Transmission Date: 20180321
  Serious: Yes (Other)
  Sender: FDA-Public Use
  Company Number: BE-CIPLA LTD.-2016BE14866

PATIENT

DRUGS (7)
  1. LEUCOVORIN. [Suspect]
     Active Substance: LEUCOVORIN
     Indication: ADENOCARCINOMA OF COLON
     Dosage: 200 MG/M2, UNK (12 CYCLES AT 15 DAYS INTERVAL)
     Route: 065
  2. OXALIPLATIN. [Suspect]
     Active Substance: OXALIPLATIN
     Indication: ADENOCARCINOMA OF COLON
     Dosage: 85 MG/M2, UNK (12 CYCLES AT 15 DAYS INTERVAL)
     Route: 065
  3. CANDESARTAN. [Concomitant]
     Active Substance: CANDESARTAN
     Indication: ESSENTIAL HYPERTENSION
     Dosage: UNK
     Route: 065
  4. ATORVASTATIN [Concomitant]
     Active Substance: ATORVASTATIN
     Indication: HYPERCHOLESTEROLAEMIA
     Dosage: UNK
     Route: 065
  5. LEVOTHYROXINE. [Concomitant]
     Active Substance: LEVOTHYROXINE
     Indication: HYPOTHYROIDISM
     Dosage: UNK
     Route: 065
  6. FLUOROURACIL. [Suspect]
     Active Substance: FLUOROURACIL
     Indication: ADENOCARCINOMA OF COLON
     Dosage: 1000 MG/M2, UNK (12 CYCLES AT 15 DAYS INTERVAL)
     Route: 065
  7. AMLODIPINE [Concomitant]
     Active Substance: AMLODIPINE BESYLATE
     Indication: ESSENTIAL HYPERTENSION
     Dosage: UNK
     Route: 065

REACTIONS (2)
  - Obliterative bronchiolitis [Recovered/Resolved]
  - Organising pneumonia [Recovered/Resolved]
